FAERS Safety Report 7251238-X (Version None)
Quarter: 2011Q1

REPORT INFORMATION
  Report Type: 
  Country: None (occurrence: None)
  Receive Date: 20110128
  Receipt Date: 20110119
  Transmission Date: 20110831
  Serious: Yes (Other)
  Sender: FDA-Public Use
  Company Number: US-AMGEN-USASP2010008969

PATIENT
  Age: 67 Year
  Sex: Female

DRUGS (14)
  1. IMMUNOGLOBULINS [Concomitant]
     Indication: PRODUCT USED FOR UNKNOWN INDICATION
  2. COZAAR [Concomitant]
     Indication: HYPERTENSION
     Dosage: 50 MG, QD
     Route: 048
  3. BIOSONIDE [Concomitant]
     Indication: CHRONIC OBSTRUCTIVE PULMONARY DISEASE
     Dosage: 90 A?G, BID
  4. CALCIUM CARBONATE W/COLECALCIFEROL [Concomitant]
     Dosage: 200 UNIT, BID
  5. VERELAN [Concomitant]
     Indication: HYPERTENSION
  6. ACCOLATE [Concomitant]
     Indication: ASTHMA
  7. VENTOLIN [Concomitant]
  8. IRBESARTAN [Concomitant]
  9. ALBUTEROL SULFATE [Concomitant]
     Indication: CHRONIC OBSTRUCTIVE PULMONARY DISEASE
  10. ESOMEPRAZOLE MAGNESIUM [Concomitant]
     Dosage: 40 MG, QD
  11. NPLATE [Suspect]
     Indication: IDIOPATHIC THROMBOCYTOPENIC PURPURA
     Dosage: UNK
     Dates: start: 20101208
  12. AMBIEN [Concomitant]
  13. APAP TAB [Concomitant]
     Indication: PAIN
     Dosage: 325 MG, PRN
  14. DILTIAZEM [Concomitant]

REACTIONS (11)
  - HAEMORRHAGE [None]
  - NEOPLASM [None]
  - FLUID OVERLOAD [None]
  - GAIT DISTURBANCE [None]
  - DRUG INEFFECTIVE [None]
  - PLATELET COUNT DECREASED [None]
  - RALES [None]
  - DYSPNOEA [None]
  - VISION BLURRED [None]
  - TREMOR [None]
  - MALAISE [None]
